FAERS Safety Report 16883589 (Version 1)
Quarter: 2019Q4

REPORT INFORMATION
  Report Type: Spontaneous
  Country: CA (occurrence: CA)
  Receive Date: 20191004
  Receipt Date: 20191004
  Transmission Date: 20200122
  Serious: Yes (Hospitalization, Other)
  Sender: FDA-Public Use
  Company Number: CA-TEVA-2019-CA-1115356

PATIENT
  Age: 77 Year
  Sex: Male

DRUGS (6)
  1. OXYCODONE [Suspect]
     Active Substance: OXYCODONE
     Indication: PRODUCT USED FOR UNKNOWN INDICATION
     Route: 065
  2. ACETAMINOPHEN/CODEINE PHOSPHATE/SALICYLAMIDE [Suspect]
     Active Substance: ACETAMINOPHEN\CODEINE\SALICYLAMIDE
     Indication: PRODUCT USED FOR UNKNOWN INDICATION
     Route: 065
  3. ASPIRIN. [Suspect]
     Active Substance: ASPIRIN
     Indication: ANTIPLATELET THERAPY
     Route: 065
  4. TRIMIPRAMINE [Suspect]
     Active Substance: TRIMIPRAMINE
     Indication: PRODUCT USED FOR UNKNOWN INDICATION
     Route: 065
  5. CLOPIDOGREL [Suspect]
     Active Substance: CLOPIDOGREL BISULFATE
     Indication: ANTIPLATELET THERAPY
     Route: 048
  6. BACLOFEN. [Suspect]
     Active Substance: BACLOFEN
     Indication: ANTIPLATELET THERAPY
     Route: 065

REACTIONS (1)
  - Delirium [Recovered/Resolved]
